FAERS Safety Report 6961223-0 (Version None)
Quarter: 2010Q3

REPORT INFORMATION
  Report Type: 
  Country: None (occurrence: None)
  Receive Date: 20100901
  Receipt Date: 20100824
  Transmission Date: 20110219
  Serious: Yes (Hospitalization)
  Sender: FDA-Public Use
  Company Number: NL-JNJFOC-20100808501

PATIENT
  Sex: Female
  Weight: 26.8 kg

DRUGS (2)
  1. REMICADE [Suspect]
     Indication: INFLAMMATORY BOWEL DISEASE
  2. AZATHIOPRINE [Concomitant]

REACTIONS (1)
  - CROHN'S DISEASE [None]
